FAERS Safety Report 4545169-3 (Version None)
Quarter: 2005Q1

REPORT INFORMATION
  Report Type: 
  Country: None (occurrence: None)
  Receive Date: 20050103
  Receipt Date: 20041122
  Transmission Date: 20050727
  Serious: Yes (Hospitalization)
  Sender: FDA-Public Use
  Company Number: 2004100110

PATIENT
  Age: 11 Year
  Sex: Male
  Weight: 33 kg

DRUGS (2)
  1. METHYLPREDNISOLONE ACETATE [Suspect]
     Indication: ILL-DEFINED DISORDER
     Dosage: 650 MG DAILY INTRAVENOUS
     Route: 036
     Dates: start: 20040705, end: 20040709
  2. PREDNISONE [Concomitant]

REACTIONS (8)
  - AGGRESSION [None]
  - ANXIETY [None]
  - DELIRIUM [None]
  - DEPRESSION [None]
  - DISINHIBITION [None]
  - ELECTROENCEPHALOGRAM ABNORMAL [None]
  - HALLUCINATION, AUDITORY [None]
  - MANIA [None]
